FAERS Safety Report 4817078-3 (Version None)
Quarter: 2005Q4

REPORT INFORMATION
  Report Type: 
  Country: None (occurrence: None)
  Receive Date: 20051018
  Receipt Date: 20050622
  Transmission Date: 20060501
  Serious: Yes (Other)
  Sender: FDA-Public Use
  Company Number: PHEH2005US07068

PATIENT
  Sex: Male

DRUGS (1)
  1. ZOMETA [Suspect]
     Dosage: INTRAVENOUS
     Route: 042
     Dates: start: 20050610, end: 20050610

REACTIONS (1)
  - HYPOCALCAEMIA [None]
